FAERS Safety Report 24737839 (Version 5)
Quarter: 2025Q3

REPORT INFORMATION
  Report Type: Spontaneous
  Country: JP (occurrence: JP)
  Receive Date: 20241216
  Receipt Date: 20250803
  Transmission Date: 20251020
  Serious: Yes (Death, Life-Threatening, Other)
  Sender: ALEXION PHARMACEUTICALS
  Company Number: JP-ASTRAZENECA-240068111_064320_P_1

PATIENT
  Age: 78 Year
  Sex: Male
  Weight: 89 kg

DRUGS (23)
  1. ONDEXXYA [Suspect]
     Active Substance: ANDEXANET ALFA
     Indication: Cerebellar haemorrhage
     Dates: start: 20240709, end: 20240709
  2. ONDEXXYA [Suspect]
     Active Substance: ANDEXANET ALFA
     Dates: start: 20240709, end: 20240709
  3. AZOSEMIDE [Concomitant]
     Active Substance: AZOSEMIDE
     Indication: Cardiac failure
  4. AZOSEMIDE [Concomitant]
     Active Substance: AZOSEMIDE
  5. AZOSEMIDE [Concomitant]
     Active Substance: AZOSEMIDE
  6. VALSARTAN [Concomitant]
     Active Substance: VALSARTAN
     Indication: Hypertension
  7. VALSARTAN [Concomitant]
     Active Substance: VALSARTAN
     Dosage: 80 MILLIGRAM, QD
  8. VALSARTAN [Concomitant]
     Active Substance: VALSARTAN
  9. FEBUXOSTAT [Concomitant]
     Active Substance: FEBUXOSTAT
  10. FEBUXOSTAT [Concomitant]
     Active Substance: FEBUXOSTAT
  11. FEBUXOSTAT [Concomitant]
     Active Substance: FEBUXOSTAT
  12. ELIQUIS [Concomitant]
     Active Substance: APIXABAN
     Indication: Atrial fibrillation
  13. ELIQUIS [Concomitant]
     Active Substance: APIXABAN
  14. ELIQUIS [Concomitant]
     Active Substance: APIXABAN
  15. DIPYRIDAMOLE [Concomitant]
     Active Substance: DIPYRIDAMOLE
     Indication: Chronic kidney disease
  16. DIPYRIDAMOLE [Concomitant]
     Active Substance: DIPYRIDAMOLE
  17. DIPYRIDAMOLE [Concomitant]
     Active Substance: DIPYRIDAMOLE
  18. NIFEDIPINE [Concomitant]
     Active Substance: NIFEDIPINE
     Indication: Hypertension
  19. NIFEDIPINE [Concomitant]
     Active Substance: NIFEDIPINE
  20. NIFEDIPINE [Concomitant]
     Active Substance: NIFEDIPINE
  21. HALCION [Concomitant]
     Active Substance: TRIAZOLAM
  22. HALCION [Concomitant]
     Active Substance: TRIAZOLAM
  23. HALCION [Concomitant]
     Active Substance: TRIAZOLAM

REACTIONS (2)
  - Cerebral infarction [Not Recovered/Not Resolved]
  - Cerebellar haemorrhage [Fatal]

NARRATIVE: CASE EVENT DATE: 20240711
